FAERS Safety Report 18608273 (Version 1)
Quarter: 2020Q4

REPORT INFORMATION
  Report Type: Spontaneous
  Country: US (occurrence: US)
  Receive Date: 20201212
  Receipt Date: 20201212
  Transmission Date: 20210114
  Serious: No
  Sender: FDA-Public Use
  Company Number: US-MACLEODS PHARMACEUTICALS US LTD-MAC2020029379

PATIENT

DRUGS (2)
  1. OSELTAMIVIR PHOSPHATE 75 MG CAPSULES [Suspect]
     Active Substance: OSELTAMIVIR PHOSPHATE
     Indication: INFLUENZA
     Dosage: 1 DOSAGE FORM, QD
     Route: 048
     Dates: start: 20200210, end: 20200210
  2. BENZONATATE. [Concomitant]
     Active Substance: BENZONATATE
     Indication: COUGH
     Dosage: 1 DOSAGE FORM, QD (PRESCRIBED AS 1 CAPSULE BY MOUTH TID, AS NEEDED)
     Route: 048

REACTIONS (2)
  - Malaise [Recovered/Resolved]
  - Nausea [Recovered/Resolved]

NARRATIVE: CASE EVENT DATE: 20200210
